FAERS Safety Report 21704773 (Version 2)
Quarter: 2023Q1

REPORT INFORMATION
  Report Type: Spontaneous
  Country: FR (occurrence: FR)
  Receive Date: 20221209
  Receipt Date: 20230320
  Transmission Date: 20230418
  Serious: Yes (Hospitalization)
  Sender: FDA-Public Use
  Company Number: None

PATIENT
  Age: 54 Year
  Sex: Male
  Weight: 80 kg

DRUGS (2)
  1. LEVOFLOXACIN [Suspect]
     Active Substance: LEVOFLOXACIN
     Indication: Bacteraemia
     Dosage: 1 GRAM DAILY; 500MG X2/D,
     Route: 065
     Dates: start: 20221007, end: 20221101
  2. RIFAMPIN [Suspect]
     Active Substance: RIFAMPIN
     Indication: Bacteraemia
     Dosage: 1.2 GRAM DAILY; 600MG X2/D,
     Dates: start: 20221007, end: 20221103

REACTIONS (1)
  - Vascular purpura [Recovering/Resolving]

NARRATIVE: CASE EVENT DATE: 20221031
